FAERS Safety Report 9022224 (Version 2)
Quarter: 2013Q1

REPORT INFORMATION
  Report Type: Spontaneous
  Country: BE (occurrence: BE)
  Receive Date: 20130118
  Receipt Date: 20130307
  Transmission Date: 20140127
  Serious: Yes (Death)
  Sender: FDA-Public Use
  Company Number: BE-ELI_LILLY_AND_COMPANY-BE201301004764

PATIENT
  Age: 54 Year
  Sex: Male
  Weight: 70 kg

DRUGS (10)
  1. ALIMTA [Suspect]
     Indication: NON-SMALL CELL LUNG CANCER
  2. CISPLATIN [Concomitant]
  3. SEROQUEL [Concomitant]
  4. ETUMINE [Concomitant]
  5. MEPOLOL [Concomitant]
  6. SPIDIFEN                           /00109201/ [Concomitant]
  7. DAFALGAN [Concomitant]
  8. FOLAVIT [Concomitant]
  9. VITAMIN B12 [Concomitant]
  10. DEXAMETHASONE [Concomitant]

REACTIONS (1)
  - Haemorrhage [Fatal]
